FAERS Safety Report 6902917-2 (Version None)
Quarter: 2010Q3

REPORT INFORMATION
  Report Type: 
  Country: None (occurrence: None)
  Receive Date: 20100803
  Receipt Date: 20080822
  Transmission Date: 20110219
  Serious: No
  Sender: FDA-Public Use
  Company Number: US-PFIZER INC-2008071146

PATIENT
  Sex: Female
  Weight: 75 kg

DRUGS (5)
  1. LYRICA [Suspect]
     Indication: FIBROMYALGIA
     Dates: start: 20080101
  2. LYRICA [Suspect]
     Indication: BURNING SENSATION
  3. LYRICA [Suspect]
     Indication: MUSCULOSKELETAL PAIN
  4. ANTIHYPERTENSIVES [Concomitant]
  5. DRUG, UNSPECIFIED [Concomitant]

REACTIONS (2)
  - TREMOR [None]
  - WEIGHT INCREASED [None]
